FAERS Safety Report 5599717-5 (Version None)
Quarter: 2008Q1

REPORT INFORMATION
  Report Type: 
  Country: None (occurrence: None)
  Receive Date: 20080123
  Receipt Date: 20080115
  Transmission Date: 20080703
  Serious: Yes (Hospitalization)
  Sender: FDA-Public Use
  Company Number: HU-BRISTOL-MYERS SQUIBB COMPANY-14041818

PATIENT
  Age: 38 Year
  Sex: Female

DRUGS (6)
  1. CDDP [Suspect]
     Indication: METASTATIC GASTRIC CANCER
     Dosage: CYCLE 1-2,  START DATE OF CISPLATIN ON 09-NOV-2005.
     Route: 041
     Dates: start: 20060104, end: 20060104
  2. FLUOROURACIL [Suspect]
     Indication: METASTATIC GASTRIC CANCER
     Dosage: CYCLE 1-2, START DATE OF 5-FLUOROURACIL ON 09-NOV-2005.
     Route: 041
     Dates: start: 20060104, end: 20060109
  3. CEFROXADINE [Concomitant]
     Indication: UPPER RESPIRATORY TRACT INFECTION
     Route: 048
     Dates: start: 20060104, end: 20060109
  4. ONDANSETRON [Concomitant]
     Indication: PROPHYLAXIS
     Route: 042
     Dates: start: 20060104, end: 20060109
  5. METOCLOPRAMIDE [Concomitant]
     Indication: PROPHYLAXIS
     Route: 042
     Dates: start: 20060104, end: 20060109
  6. DIAZEPAM [Concomitant]
     Indication: PROPHYLAXIS
     Route: 042
     Dates: start: 20060104, end: 20060109

REACTIONS (2)
  - MUCOSAL INFLAMMATION [None]
  - NAUSEA [None]
